FAERS Safety Report 11118837 (Version 3)
Quarter: 2015Q2

REPORT INFORMATION
  Report Type: Spontaneous
  Country: US (occurrence: US)
  Receive Date: 20150518
  Receipt Date: 20150618
  Transmission Date: 20150821
  Serious: Yes (Hospitalization, Other)
  Sender: FDA-Public Use
  Company Number: US-009507513-1201USA00237

PATIENT
  Sex: Female
  Weight: 75 kg

DRUGS (1)
  1. FOSAMAX [Suspect]
     Active Substance: ALENDRONATE SODIUM
     Indication: BONE DENSITY DECREASED
     Dosage: 70 MG, QW
     Route: 048
     Dates: start: 20031108, end: 20051228

REACTIONS (28)
  - Tibia fracture [Unknown]
  - Arthritis [Unknown]
  - Asthma [Unknown]
  - Dyspnoea [Unknown]
  - Uterine dilation and curettage [Unknown]
  - Impaired healing [Unknown]
  - Ankle fracture [Unknown]
  - Osteopenia [Unknown]
  - Ear pain [Unknown]
  - Pneumonia [Unknown]
  - Osteopenia [Unknown]
  - Meniere^s disease [Unknown]
  - Surgery [Unknown]
  - Hypothyroidism [Unknown]
  - Hypertension [Unknown]
  - Extraskeletal ossification [Unknown]
  - Fracture nonunion [Unknown]
  - Autoimmune thyroiditis [Unknown]
  - Ankle fracture [Unknown]
  - Ankle operation [Unknown]
  - Haemorrhoids [Unknown]
  - Gastrooesophageal reflux disease [Unknown]
  - Intramedullary rod insertion [Unknown]
  - Cholecystectomy [Unknown]
  - Femur fracture [Unknown]
  - Hypoparathyroidism [Unknown]
  - Fibula fracture [Unknown]
  - Constipation [Unknown]

NARRATIVE: CASE EVENT DATE: 2003
